FAERS Safety Report 7254677-6 (Version None)
Quarter: 2011Q1

REPORT INFORMATION
  Report Type: 
  Country: None (occurrence: None)
  Receive Date: 20110129
  Receipt Date: 20100405
  Transmission Date: 20110831
  Serious: No
  Sender: FDA-Public Use
  Company Number: US-ABBOTT-10P-163-0636670-00

PATIENT
  Sex: Male

DRUGS (4)
  1. HUMIRA [Suspect]
     Indication: COLITIS
     Dates: start: 20091229, end: 20091229
  2. HUMIRA [Suspect]
     Dates: start: 20100112, end: 20100201
  3. HUMIRA [Suspect]
     Indication: CROHN'S DISEASE
     Dosage: 160 MG
     Dates: start: 20091215, end: 20091215
  4. HUMIRA [Suspect]
     Dates: start: 20100316

REACTIONS (6)
  - HEADACHE [None]
  - INAPPROPRIATE SCHEDULE OF DRUG ADMINISTRATION [None]
  - TONSILLAR HYPERTROPHY [None]
  - SECRETION DISCHARGE [None]
  - PHARYNGITIS STREPTOCOCCAL [None]
  - OROPHARYNGEAL PAIN [None]
